FAERS Safety Report 8076708-6 (Version None)
Quarter: 2012Q1

REPORT INFORMATION
  Report Type: 
  Country: None (occurrence: None)
  Receive Date: 20120127
  Receipt Date: 20120118
  Transmission Date: 20120608
  Serious: Yes (Hospitalization)
  Sender: FDA-Public Use
  Company Number: US-JNJFOC-20120109251

PATIENT
  Sex: Female
  Weight: 32.5 kg

DRUGS (6)
  1. REMICADE [Suspect]
     Indication: COLITIS ULCERATIVE
     Route: 042
  2. URSODIOL [Concomitant]
  3. PREDNISONE TAB [Concomitant]
  4. MULTIPLE VITAMIN [Concomitant]
  5. PROBIOTIC [Concomitant]
  6. REMICADE [Suspect]
     Route: 042
     Dates: start: 20111222

REACTIONS (1)
  - COLITIS ULCERATIVE [None]
